FAERS Safety Report 6195776-X (Version None)
Quarter: 2009Q2

REPORT INFORMATION
  Report Type: 
  Country: None (occurrence: None)
  Receive Date: 20090520
  Receipt Date: 20070516
  Transmission Date: 20091009
  Serious: Yes (Hospitalization, Other)
  Sender: FDA-Public Use
  Company Number: US-ASTRAZENECA-2006UW23846

PATIENT
  Age: 10961 Day
  Sex: Male
  Weight: 120.5 kg

DRUGS (10)
  1. SEROQUEL [Suspect]
     Indication: DEPRESSION
     Route: 048
     Dates: start: 20030101, end: 20030101
  2. SEROQUEL [Suspect]
     Indication: ANXIETY
     Route: 048
     Dates: start: 20030101, end: 20030101
  3. SEROQUEL [Suspect]
     Dosage: 100 MG TO 200 MG
     Route: 048
     Dates: start: 20031223
  4. SEROQUEL [Suspect]
     Dosage: 100 MG TO 200 MG
     Route: 048
     Dates: start: 20031223
  5. RISPERDAL [Concomitant]
     Route: 065
  6. PAXIL [Concomitant]
     Route: 065
  7. ZYPREXA [Concomitant]
     Route: 065
  8. PROZAC [Concomitant]
     Route: 065
  9. PAROXETINE HCL [Concomitant]
     Route: 048
  10. GLUCOPHAGE [Concomitant]
     Route: 048

REACTIONS (8)
  - DIABETES MELLITUS [None]
  - FAMILY STRESS [None]
  - HYPERTENSION [None]
  - MAJOR DEPRESSION [None]
  - OBESITY [None]
  - RHINITIS ALLERGIC [None]
  - SCHIZOAFFECTIVE DISORDER DEPRESSIVE TYPE [None]
  - TINEA PEDIS [None]
